FAERS Safety Report 9034596 (Version 1)
Quarter: 2013Q1

REPORT INFORMATION
  Report Type: Spontaneous
  Country: SE (occurrence: None)
  Receive Date: 20130118
  Receipt Date: 20130118
  Transmission Date: 20140127
  Serious: Yes (Death)
  Sender: FDA-Public Use
  Company Number: 2013-00111

PATIENT
  Age: 21 Year
  Sex: Male

DRUGS (1)
  1. MIXED AMPHETAMINES [Suspect]
     Indication: PRODUCT USED FOR UNKNOWN INDICATION

REACTIONS (2)
  - Coronary artery thrombosis [None]
  - Toxicity to various agents [None]
